FAERS Safety Report 9542205 (Version 1)
Quarter: 2013Q3

REPORT INFORMATION
  Report Type: Spontaneous
  Country: GB (occurrence: GB)
  Receive Date: 20130923
  Receipt Date: 20130923
  Transmission Date: 20140515
  Serious: Yes (Hospitalization)
  Sender: FDA-Public Use
  Company Number: PHHY2013GB102986

PATIENT
  Age: 20 Year
  Sex: Male

DRUGS (3)
  1. PARACETAMOL [Suspect]
     Dosage: 30 DF (TABLETS)
     Route: 048
  2. CITALOPRAM [Suspect]
  3. CORICIDIN [Suspect]

REACTIONS (5)
  - Heart rate increased [Recovering/Resolving]
  - Toxicity to various agents [Recovering/Resolving]
  - Agitation [Recovering/Resolving]
  - Transaminases increased [Recovering/Resolving]
  - Intentional overdose [Recovering/Resolving]
